FAERS Safety Report 12047938 (Version 7)
Quarter: 2017Q3

REPORT INFORMATION
  Report Type: Spontaneous
  Country: JP (occurrence: JP)
  Receive Date: 20160208
  Receipt Date: 20170718
  Transmission Date: 20171127
  Serious: Yes (Hospitalization)
  Sender: FDA-Public Use
  Company Number: JP-TAKEDA-2016MPI000684

PATIENT
  Age: 84 Year
  Sex: Female
  Weight: 26.5 kg

DRUGS (73)
  1. CALONAL [Concomitant]
     Active Substance: ACETAMINOPHEN
     Dosage: 600 MG, UNK
     Route: 048
     Dates: start: 20150707, end: 20151116
  2. ZOVIRAX [Concomitant]
     Active Substance: ACYCLOVIR
     Indication: PROPHYLAXIS
     Dosage: 200 MG, QD
     Route: 048
     Dates: start: 20150707, end: 20160104
  3. TRAMAL [Concomitant]
     Active Substance: TRAMADOL
     Dosage: 25 MG, QID
     Route: 048
     Dates: start: 20150703, end: 20150706
  4. SENNOSIDE                          /00571901/ [Concomitant]
     Active Substance: SENNOSIDES A AND B
     Indication: CONSTIPATION
     Dosage: 24 MG, UNK
     Route: 048
     Dates: start: 20150708, end: 20150810
  5. ZOLEDRONIC ACID [Concomitant]
     Active Substance: ZOLEDRONIC ACID
     Indication: PROPHYLAXIS
     Dosage: 4 MG, UNK
     Route: 042
     Dates: start: 20150803, end: 20150803
  6. AMOBAN [Concomitant]
     Active Substance: ZOPICLONE
     Indication: INSOMNIA
     Dosage: 5 MG, UNK
     Route: 048
     Dates: start: 20150713, end: 20151009
  7. CEFCAPENE PIVOXIL HYDROCHLORIDE [Concomitant]
     Active Substance: CEFCAPENE PIVOXIL HYDROCHLORIDE
     Indication: UPPER RESPIRATORY TRACT INFECTION
     Dosage: 100 MG, TID
     Route: 048
     Dates: start: 20151106, end: 20151110
  8. PL [Concomitant]
     Active Substance: ACETAMINOPHEN\CAFFEINE\PROMETHAZINE\SALICYLAMIDE
     Indication: UPPER RESPIRATORY TRACT INFECTION
     Dosage: 1 G, TID
     Route: 048
     Dates: start: 20151106, end: 20151110
  9. TRAMAL [Concomitant]
     Active Substance: TRAMADOL
     Dosage: 25 MG, BID
     Route: 048
     Dates: start: 20151117, end: 20151204
  10. SODIUM CHLORIDE. [Concomitant]
     Active Substance: SODIUM CHLORIDE
     Indication: HYPONATRAEMIA
     Dosage: 2 G, TID
     Route: 048
     Dates: start: 20150710, end: 20150710
  11. SODIUM CHLORIDE. [Concomitant]
     Active Substance: SODIUM CHLORIDE
     Dosage: 1 G, TID
     Route: 048
     Dates: start: 20151226, end: 20160103
  12. SODIUM CHLORIDE. [Concomitant]
     Active Substance: SODIUM CHLORIDE
     Dosage: 1 G, UNK
     Route: 048
     Dates: start: 20160104, end: 20160325
  13. HIRUDOID                           /00723701/ [Concomitant]
     Active Substance: PENTOSAN POLYSULFATE SODIUM
     Indication: ERYTHEMA MULTIFORME
     Dosage: UNK
     Route: 061
     Dates: start: 20150715, end: 20151009
  14. BIOFERMIN                          /01617201/ [Concomitant]
     Active Substance: BACILLUS SUBTILIS\LACTOBACILLUS ACIDOPHILUS\STREPTOCOCCUS FAECAIS
     Indication: DIARRHOEA
     Dosage: UNK UNK, TID
     Route: 048
     Dates: start: 20151117, end: 20151119
  15. HEPARIN SODIUM. [Concomitant]
     Active Substance: HEPARIN SODIUM
     Dosage: UNK
     Route: 065
  16. SOLULACT [Concomitant]
     Indication: TUBERCULOUS PLEURISY
     Dosage: 500 ML, QD
     Route: 042
     Dates: start: 20151115, end: 20151117
  17. ZOSYN [Concomitant]
     Active Substance: PIPERACILLIN SODIUM\TAZOBACTAM SODIUM
     Indication: TUBERCULOUS PLEURISY
     Dosage: 4.5 G, QD
     Route: 042
     Dates: start: 20151117, end: 20151206
  18. TRIMETHOPRIM. [Concomitant]
     Active Substance: TRIMETHOPRIM
     Indication: INFECTION PROPHYLAXIS
     Dosage: 80 MG, UNK
     Route: 048
     Dates: start: 20150701, end: 20150809
  19. SOLDEM [Concomitant]
     Active Substance: DEXTROSE\POTASSIUM CHLORIDE\SODIUM CHLORIDE\SODIUM LACTATE
     Indication: TUBERCULOUS PLEURISY
     Dosage: 500 ML, QD
     Route: 042
     Dates: start: 20151114, end: 20151117
  20. ACETAMINOPHEN. [Concomitant]
     Active Substance: ACETAMINOPHEN
     Indication: SPINAL COMPRESSION FRACTURE
     Dosage: 325 MG, QID
     Route: 048
     Dates: start: 20150709, end: 20150723
  21. VELCADE [Suspect]
     Active Substance: BORTEZOMIB
     Indication: PLASMA CELL MYELOMA
     Dosage: 1.3 MG, 1/WEEK
     Route: 058
     Dates: start: 20150629, end: 20151102
  22. PREDNISOLONE. [Suspect]
     Active Substance: PREDNISOLONE
     Indication: PLASMA CELL MYELOMA
     Dosage: 60 MG, QD
     Route: 048
     Dates: start: 20150629, end: 20151102
  23. MELPHALAN. [Suspect]
     Active Substance: MELPHALAN
     Indication: PLASMA CELL MYELOMA
     Dosage: 8 MG, QD
     Route: 048
     Dates: start: 20150629, end: 20151102
  24. GASMOTIN [Concomitant]
     Active Substance: MOSAPRIDE CITRATE
     Indication: CHRONIC GASTRITIS
     Dosage: 2.5 MG, QD
     Route: 048
     Dates: start: 20150706
  25. MAGMITT [Concomitant]
     Active Substance: MAGNESIUM OXIDE
     Indication: CONSTIPATION
     Dosage: 330 MG, UNK
     Route: 048
     Dates: start: 20150810, end: 20151206
  26. SODIUM CHLORIDE. [Concomitant]
     Active Substance: SODIUM CHLORIDE
     Dosage: 1 G, TID
     Route: 048
     Dates: start: 20151031, end: 20151105
  27. AMOXICILLIN HYDRATE [Concomitant]
     Active Substance: AMOXICILLIN
     Dosage: 250 MG, TID
     Route: 048
     Dates: start: 20160617, end: 20160626
  28. ENSURE [Concomitant]
     Active Substance: AMINO ACIDS\DEXTROSE\ELECTROLYTES NOS\SOYBEAN OIL\VITAMINS
     Indication: DECREASED APPETITE
     Dosage: 250 ML, UNK
     Route: 048
     Dates: start: 20150727, end: 20151218
  29. TRAMADOL HYDROCHLORIDE. [Concomitant]
     Active Substance: TRAMADOL HYDROCHLORIDE
     Indication: SPINAL COMPRESSION FRACTURE
     Dosage: 37.5 MG, QID
     Route: 048
     Dates: start: 20150709, end: 20150723
  30. TAKEPRON [Concomitant]
     Active Substance: LANSOPRAZOLE
     Indication: CHRONIC GASTRITIS
     Dosage: 15 MG, QD
     Route: 065
  31. MOHRUS [Concomitant]
     Active Substance: KETOPROFEN
     Indication: SPINAL COMPRESSION FRACTURE
     Dosage: 40 MG, UNK
     Route: 061
  32. ZOVIRAX [Concomitant]
     Active Substance: ACYCLOVIR
     Dosage: 200 MG, BID
     Route: 048
     Dates: start: 20150605, end: 20150706
  33. PROCHLORPERAZINE. [Concomitant]
     Active Substance: PROCHLORPERAZINE
     Indication: NAUSEA
     Dosage: UNK
     Route: 065
  34. MAGMITT [Concomitant]
     Active Substance: MAGNESIUM OXIDE
     Dosage: 330 MG, UNK
     Route: 048
     Dates: start: 20150708, end: 20150810
  35. SODIUM CHLORIDE. [Concomitant]
     Active Substance: SODIUM CHLORIDE
     Dosage: 1 G, TID
     Route: 048
     Dates: start: 20151106, end: 20151225
  36. SULFAMETHOXAZOLE [Concomitant]
     Active Substance: SULFAMETHOXAZOLE
     Indication: PROPHYLAXIS
     Dosage: 400 MG, UNK
     Route: 048
     Dates: start: 20150701, end: 20160809
  37. XYLOCAINE [Concomitant]
     Active Substance: LIDOCAINE HYDROCHLORIDE
     Indication: BLADDER CATHETERISATION
     Dosage: 3 ML, UNK
     Route: 061
     Dates: start: 20151114, end: 20151114
  38. ACETAMINOPHEN. [Concomitant]
     Active Substance: ACETAMINOPHEN
     Dosage: 325 MG, QID
     Route: 048
     Dates: start: 20151114, end: 20151114
  39. ACETAMINOPHEN. [Concomitant]
     Active Substance: ACETAMINOPHEN
     Dosage: 325 MG, BID
     Route: 048
     Dates: start: 20151115, end: 20151117
  40. ALFAROL [Concomitant]
     Active Substance: ALFACALCIDOL
     Indication: OSTEOPOROSIS
     Dosage: UNK
     Route: 065
  41. CALONAL [Concomitant]
     Active Substance: ACETAMINOPHEN
     Indication: SPINAL COMPRESSION FRACTURE
     Dosage: 600 MG, UNK
     Route: 048
     Dates: start: 20150603, end: 20150628
  42. CALONAL [Concomitant]
     Active Substance: ACETAMINOPHEN
     Indication: CATHETER SITE PAIN
     Dosage: 600 MG, QID
     Route: 048
     Dates: start: 20150629, end: 20150706
  43. AUGMENTIN [Concomitant]
     Active Substance: AMOXICILLIN\CLAVULANATE POTASSIUM
     Dosage: UNK
     Route: 065
  44. TRAMAL [Concomitant]
     Active Substance: TRAMADOL
     Dosage: 50 MG, TID
     Route: 048
     Dates: start: 20150708, end: 20150709
  45. TRAMCET [Concomitant]
     Active Substance: ACETAMINOPHEN\TRAMADOL
     Indication: NAUSEA
     Dosage: UNK
     Route: 065
  46. AMOXICILLIN HYDRATE [Concomitant]
     Active Substance: AMOXICILLIN
     Indication: PROPHYLAXIS
     Dosage: 125 MG, TID
     Route: 048
     Dates: start: 20160617, end: 20160626
  47. POPIYODON [Concomitant]
     Indication: ASPIRATION PLEURAL CAVITY
     Dosage: 15 ML, UNK
     Route: 061
     Dates: start: 20151124, end: 20151203
  48. ZOSYN [Concomitant]
     Active Substance: PIPERACILLIN SODIUM\TAZOBACTAM SODIUM
     Indication: LUNG INFECTION
     Dosage: 2.25 MG, TID
     Route: 042
     Dates: start: 20151114, end: 20151116
  49. POTASSIUM CLAVULANATE [Concomitant]
     Active Substance: CLAVULANATE POTASSIUM
     Indication: PROPHYLAXIS
     Dosage: UNK
     Route: 065
  50. SOLDEM [Concomitant]
     Active Substance: DEXTROSE\POTASSIUM CHLORIDE\SODIUM CHLORIDE\SODIUM LACTATE
     Indication: LUNG INFECTION
  51. LIDOCAINE. [Concomitant]
     Active Substance: LIDOCAINE
     Indication: THORACIC CAVITY DRAINAGE
     Dosage: 10 ML, UNK
     Route: 050
     Dates: start: 20151124, end: 20151203
  52. LIDOCAINE. [Concomitant]
     Active Substance: LIDOCAINE
     Indication: ASPIRATION PLEURAL CAVITY
     Dosage: 10 ML, UNK
     Route: 050
     Dates: start: 20151116, end: 20151116
  53. PERSANTIN [Concomitant]
     Active Substance: DIPYRIDAMOLE
     Indication: ISCHAEMIC HEART DISEASE PROPHYLAXIS
     Dosage: 25 MG, QD
     Route: 048
     Dates: start: 20150721, end: 20150726
  54. PERSANTIN [Concomitant]
     Active Substance: DIPYRIDAMOLE
     Dosage: 25 MG, QD
     Route: 048
     Dates: start: 20150715
  55. SODIUM CHLORIDE. [Concomitant]
     Active Substance: SODIUM CHLORIDE
     Dosage: 1 G, TID
     Route: 048
     Dates: start: 20150711, end: 20151030
  56. DERMOVATE [Concomitant]
     Active Substance: CLOBETASOL
     Indication: ERYTHEMA MULTIFORME
     Dosage: UNK
     Route: 061
     Dates: start: 20150715, end: 20151009
  57. SOLULACT [Concomitant]
     Indication: LUNG INFECTION
     Dosage: 1500 ML, UNK
     Route: 042
     Dates: start: 20151114, end: 20151114
  58. CALONAL [Concomitant]
     Active Substance: ACETAMINOPHEN
     Dosage: 300 MG, TID
     Route: 048
     Dates: start: 20151117, end: 20151204
  59. SODIUM CHLORIDE. [Concomitant]
     Active Substance: SODIUM CHLORIDE
     Indication: PROPHYLAXIS
     Dosage: 1 G, TID
     Route: 048
     Dates: start: 20150709, end: 20150709
  60. BIOFERMIN                          /01617201/ [Concomitant]
     Active Substance: BACILLUS SUBTILIS\LACTOBACILLUS ACIDOPHILUS\STREPTOCOCCUS FAECAIS
     Dosage: 6 MG, TID
     Route: 048
     Dates: start: 20151120
  61. ZOLEDRONIC ACID [Concomitant]
     Active Substance: ZOLEDRONIC ACID
     Indication: BONE LESION
     Dosage: UNK
     Route: 065
  62. POPIYODON [Concomitant]
     Indication: THORACIC CAVITY DRAINAGE
     Dosage: 15 ML, UNK
     Route: 061
     Dates: start: 20151116, end: 20151116
  63. BFLUID [Concomitant]
     Active Substance: AMINO ACIDS\DEXTROSE\ELECTROLYTES NOS\VITAMINS
     Indication: TUBERCULOUS PLEURISY
     Dosage: 500 ML, QD
     Route: 042
     Dates: start: 20151117, end: 20151206
  64. ACETAMINOPHEN. [Concomitant]
     Active Substance: ACETAMINOPHEN
     Dosage: 325 MG, TID
     Route: 048
     Dates: start: 20150724, end: 20151113
  65. XYLOCAINE [Concomitant]
     Active Substance: LIDOCAINE HYDROCHLORIDE
     Indication: BLADDER CATHETERISATION
     Dosage: 3 ML, UNK
     Route: 061
     Dates: start: 20151114, end: 20151114
  66. BENET [Concomitant]
     Active Substance: RISEDRONATE SODIUM
     Indication: OSTEOPOROSIS
     Dosage: 17.5 MG, UNK
     Route: 065
  67. TRAMAL [Concomitant]
     Active Substance: TRAMADOL
     Indication: SPINAL COMPRESSION FRACTURE
     Dosage: 25 MG, TID
     Route: 048
     Dates: start: 20150707, end: 20150707
  68. SENNOSIDE                          /00571901/ [Concomitant]
     Active Substance: SENNOSIDES A AND B
     Indication: PROPHYLAXIS
     Dosage: 24 MG, UNK
     Route: 048
     Dates: start: 20150908, end: 20151206
  69. BIOFERMIN                          /01617201/ [Concomitant]
     Active Substance: BACILLUS SUBTILIS\LACTOBACILLUS ACIDOPHILUS\STREPTOCOCCUS FAECAIS
     Dosage: UNK, TID
     Route: 048
     Dates: start: 20150810, end: 20151115
  70. PRIMPERAN [Concomitant]
     Active Substance: METOCLOPRAMIDE HYDROCHLORIDE
     Indication: NAUSEA
     Dosage: 5 MG, UNK
     Route: 048
     Dates: start: 20150713, end: 20151128
  71. BFLUID [Concomitant]
     Active Substance: AMINO ACIDS\DEXTROSE\ELECTROLYTES NOS\VITAMINS
     Indication: LUNG INFECTION
  72. NOVAMIN                            /00013301/ [Concomitant]
     Active Substance: PROCHLORPERAZINE
     Indication: NAUSEA
     Dosage: 5 MG, TID
     Route: 048
     Dates: start: 20150706, end: 20150713
  73. BIOFERMIN R [Concomitant]
     Active Substance: BACILLUS SUBTILIS\LACTOBACILLUS ACIDOPHILUS\STREPTOCOCCUS FAECAIS
     Indication: DIARRHOEA
     Dosage: UNK
     Route: 048
     Dates: start: 20151120

REACTIONS (11)
  - Nausea [Unknown]
  - Hyponatraemia [Unknown]
  - Constipation [Unknown]
  - Diarrhoea [Unknown]
  - Lung infection [Not Recovered/Not Resolved]
  - Tuberculous pleurisy [Recovered/Resolved]
  - Decreased appetite [Unknown]
  - Erythema multiforme [Unknown]
  - Insomnia [Unknown]
  - Upper respiratory tract infection [Unknown]
  - Catheter site pain [Unknown]

NARRATIVE: CASE EVENT DATE: 20150704
